FAERS Safety Report 18049706 (Version 2)
Quarter: 2020Q3

REPORT INFORMATION
  Report Type: Report from Study
  Country: CO (occurrence: CO)
  Receive Date: 20200721
  Receipt Date: 20200806
  Transmission Date: 20201103
  Serious: Yes (Other)
  Sender: FDA-Public Use
  Company Number: NVSC2020CO195851

PATIENT
  Age: 82 Year
  Sex: Female
  Weight: 67 kg

DRUGS (2)
  1. TASIGNA [Suspect]
     Active Substance: NILOTINIB
     Indication: CHRONIC MYELOID LEUKAEMIA
     Dosage: 300 MG, Q12H  (EVERY 12 HOURS)
     Route: 048
     Dates: start: 20200703
  2. TASIGNA [Suspect]
     Active Substance: NILOTINIB
     Dosage: 150 MG, QD (ONE AT NIGHT)
     Route: 048

REACTIONS (8)
  - Hypersensitivity [Unknown]
  - Varicose vein [Unknown]
  - Thrombosis [Unknown]
  - Skin disorder [Unknown]
  - Rash [Unknown]
  - Inappropriate schedule of product administration [Unknown]
  - Dermatitis allergic [Unknown]
  - Pain in extremity [Unknown]

NARRATIVE: CASE EVENT DATE: 20200704
